FAERS Safety Report 6224611-6 (Version None)
Quarter: 2009Q2

REPORT INFORMATION
  Report Type: 
  Country: None (occurrence: None)
  Receive Date: 20090612
  Receipt Date: 20090323
  Transmission Date: 20091009
  Serious: No
  Sender: FDA-Public Use
  Company Number: US-ABBOTT-09P-163-0564166-00

PATIENT
  Sex: Female
  Weight: 54.48 kg

DRUGS (4)
  1. HUMIRA [Suspect]
     Indication: RHEUMATOID ARTHRITIS
     Route: 058
     Dates: start: 20090301
  2. HUMIRA [Suspect]
     Dosage: HUMIRA PEN 1 IN 2 WEEKS
     Dates: end: 20090301
  3. ULTRACET [Concomitant]
     Indication: DRUG USE FOR UNKNOWN INDICATION
  4. AMBIEN [Concomitant]
     Indication: SLEEP DISORDER

REACTIONS (4)
  - DRUG INEFFECTIVE [None]
  - FEELING HOT [None]
  - MUSCLE SPASMS [None]
  - OSTEITIS [None]
